FAERS Safety Report 10588233 (Version 1)
Quarter: 2014Q4

REPORT INFORMATION
  Report Type: Spontaneous
  Country: US (occurrence: US)
  Receive Date: 20141117
  Receipt Date: 20141117
  Transmission Date: 20150529
  Serious: Yes (Hospitalization, Other)
  Sender: FDA-Public Use
  Company Number: US-RB PHARMACEUTICALS LIMITED-RB-73287-2014

PATIENT
  Sex: Female

DRUGS (4)
  1. XANAX [Suspect]
     Active Substance: ALPRAZOLAM
     Indication: SEIZURE
     Dosage: UNK
     Route: 064
     Dates: start: 201305, end: 20140225
  2. BENZOTROPINE [Suspect]
     Active Substance: BENZTROPINE
     Indication: HALLUCINATION
     Dosage: UNK
     Route: 064
     Dates: start: 201305, end: 20140225
  3. SUBOXONE [Suspect]
     Active Substance: BUPRENORPHINE HYDROCHLORIDE\NALOXONE HYDROCHLORIDE
     Indication: DRUG DEPENDENCE
     Dosage: 8 MG, TID
     Route: 064
     Dates: start: 201305, end: 20140225
  4. HALDOL [Suspect]
     Active Substance: HALOPERIDOL
     Indication: HALLUCINATION
     Dosage: UNK
     Route: 064
     Dates: start: 201305, end: 20140225

REACTIONS (7)
  - Rhinorrhoea [Not Recovered/Not Resolved]
  - Hyperaesthesia [Recovered/Resolved]
  - Foetal exposure during pregnancy [Recovered/Resolved]
  - Developmental delay [Not Recovered/Not Resolved]
  - Cough [Recovered/Resolved]
  - Failure to thrive [Recovered/Resolved]
  - Sneezing [Recovered/Resolved]

NARRATIVE: CASE EVENT DATE: 201305
